FAERS Safety Report 22338680 (Version 8)
Quarter: 2025Q1

REPORT INFORMATION
  Report Type: Spontaneous
  Country: US (occurrence: US)
  Receive Date: 20230518
  Receipt Date: 20250328
  Transmission Date: 20250409
  Serious: Yes (Other)
  Sender: PFIZER
  Company Number: US-PFIZER INC-2020147203

PATIENT
  Age: 78 Year
  Sex: Female
  Weight: 74.4 kg

DRUGS (7)
  1. IBRANCE [Suspect]
     Active Substance: PALBOCICLIB
     Indication: Breast cancer metastatic
     Route: 048
     Dates: start: 20160707
  2. IBRANCE [Suspect]
     Active Substance: PALBOCICLIB
     Indication: Metastases to lung
     Route: 048
     Dates: start: 20200526
  3. IBRANCE [Suspect]
     Active Substance: PALBOCICLIB
     Indication: Aromatase inhibition therapy
  4. XANAX [Concomitant]
     Active Substance: ALPRAZOLAM
     Route: 048
  5. CLEOCIN T [Concomitant]
     Active Substance: CLINDAMYCIN PHOSPHATE
     Dosage: APPLY A THIN FILM TWICE DAILY
     Route: 061
  6. LETROZOLE [Concomitant]
     Active Substance: LETROZOLE
     Indication: Breast cancer metastatic
     Dosage: 2.5 MG, DAILY
     Dates: start: 20160707
  7. AMLODIPINE [Concomitant]
     Active Substance: AMLODIPINE BESYLATE

REACTIONS (6)
  - Leukopenia [Unknown]
  - Arthralgia [Unknown]
  - Balance disorder [Unknown]
  - Fatigue [Unknown]
  - Rash [Unknown]
  - Anaemia of chronic disease [Unknown]
